FAERS Safety Report 25916198 (Version 1)
Quarter: 2025Q4

REPORT INFORMATION
  Report Type: Spontaneous
  Country: CH (occurrence: CH)
  Receive Date: 20251014
  Receipt Date: 20251014
  Transmission Date: 20260118
  Serious: Yes (Hospitalization, Other)
  Sender: BAXTER
  Company Number: None

PATIENT
  Age: 5 Year
  Sex: Male
  Weight: 20.3 kg

DRUGS (24)
  1. CYCLOPHOSPHAMIDE [Suspect]
     Active Substance: CYCLOPHOSPHAMIDE
     Indication: Medulloblastoma
     Dosage: 2 MAINTENANCE CYCLES
     Route: 042
     Dates: start: 20250515
  2. SODIUM CHLORIDE [Suspect]
     Active Substance: SODIUM CHLORIDE
     Dosage: 0.9% SODIUM CHLORIDE
     Route: 042
  3. CISPLATIN [Suspect]
     Active Substance: CISPLATIN
     Indication: Medulloblastoma
     Dosage: 70 MG/M2 (2 MAINTENANCE CYCLES)
     Route: 042
     Dates: start: 20250515, end: 202509
  4. CISPLATIN [Suspect]
     Active Substance: CISPLATIN
     Dosage: 70 MG/M2, TOTAL (DAY 1 OF 5TH MAINTENANCE CYCLE)
     Route: 042
     Dates: start: 20250918, end: 20250918
  5. VINCRISTINE [Suspect]
     Active Substance: VINCRISTINE
     Indication: Medulloblastoma
     Dosage: 1.5 MG/M2 (4 MAINTENANCE CYCLES)
     Route: 042
     Dates: start: 20250515, end: 202509
  6. VINCRISTINE [Suspect]
     Active Substance: VINCRISTINE
     Dosage: 1.5 MG/M2, TOTAL (DAY 1 OF 5TH MAINTENANCE CYCLE)
     Route: 042
     Dates: start: 20250918, end: 20250918
  7. LOMUSTINE [Concomitant]
     Active Substance: LOMUSTINE
     Indication: Medulloblastoma
     Dosage: 75 MG/M2 (2 MAINTENANCE CYCLES)
     Route: 048
     Dates: start: 20250515, end: 202509
  8. LOMUSTINE [Concomitant]
     Active Substance: LOMUSTINE
     Dosage: 75 MG/M2, TOTAL
     Route: 048
     Dates: start: 20250918, end: 20250918
  9. Mannitol 20% a.n.b [Concomitant]
     Dosage: 6.5 G (AS NECESSARY) (IF DIURESIS INSUFFICIENT)
     Route: 042
  10. FOSAPREPITANT [Concomitant]
     Active Substance: FOSAPREPITANT
     Dosage: UNK
     Route: 042
  11. ONDANSETRON [Concomitant]
     Active Substance: ONDANSETRON
     Dosage: UNK
     Route: 042
  12. CALCIUM GLUCONATE [Concomitant]
     Active Substance: CALCIUM GLUCONATE
     Dosage: UNK
     Route: 042
  13. DEXTROSE\SODIUM CHLORIDE [Concomitant]
     Active Substance: DEXTROSE\SODIUM CHLORIDE
     Dosage: UNK
     Route: 065
  14. MAGNESIUM SULFATE [Concomitant]
     Active Substance: MAGNESIUM SULFATE
     Dosage: 20%
     Route: 042
  15. POTASSIUM CHLORIDE [Concomitant]
     Active Substance: POTASSIUM CHLORIDE
     Dosage: UNK
     Route: 042
  16. PIPERACILLIN AND TAZOBACTAM [Concomitant]
     Active Substance: PIPERACILLIN SODIUM\TAZOBACTAM SODIUM
     Dosage: 2000 MG (AS NECESSARY) (21X/6H )
     Route: 065
  17. CLOBAZAM [Concomitant]
     Active Substance: CLOBAZAM
     Indication: Partial seizures
     Dosage: 5 MG, BID (12 HOURS)
     Route: 048
  18. LACOSAMIDE [Concomitant]
     Active Substance: LACOSAMIDE
     Indication: Partial seizures
     Dosage: 60 MG, BID (12 HOURS)
     Route: 048
  19. SULFAMETHOXAZOLE\TRIMETHOPRIM [Concomitant]
     Active Substance: SULFAMETHOXAZOLE\TRIMETHOPRIM
     Dosage: 100 MG (3X/WEEK)
     Route: 048
  20. TACROLIMUS [Concomitant]
     Active Substance: TACROLIMUS
     Dosage: 0.6 MG, BID (12 HOURS)
     Route: 048
  21. DIMENHYDRINATE [Concomitant]
     Active Substance: DIMENHYDRINATE
     Dosage: 20 MG (AS NECESSARY)
     Route: 042
  22. ACETAMINOPHEN [Concomitant]
     Active Substance: ACETAMINOPHEN
     Dosage: 300 MG (AS NECESSARY) (1X/6H)
     Route: 042
  23. DEXAMETHASONE [Concomitant]
     Active Substance: DEXAMETHASONE
     Dosage: 4 MG (AS NECESSARY) (1X DAY MAX)
     Route: 065
  24. MAGNESIUM [Concomitant]
     Active Substance: MAGNESIUM
     Dosage: 10 MMOL, BID (12 HOURS)
     Route: 065

REACTIONS (8)
  - Decreased eye contact [Recovered/Resolved]
  - Mastication disorder [Recovered/Resolved]
  - Flushing [Recovered/Resolved]
  - Neuralgia [Not Recovered/Not Resolved]
  - Pain in extremity [Not Recovered/Not Resolved]
  - Paraesthesia [Not Recovered/Not Resolved]
  - Paraesthesia [Not Recovered/Not Resolved]
  - Dizziness [Unknown]

NARRATIVE: CASE EVENT DATE: 20250919
